FAERS Safety Report 8383765 (Version 3)
Quarter: 2012Q4

REPORT INFORMATION
  Report Type: 
  Country: US (occurrence: US)
  Receive Date: 20120201
  Receipt Date: 20120918
  Transmission Date: 20130627
  Serious: Yes (Death, Hospitalization)
  Sender: FDA-Public Use
  Company Number: US-ASTELLAS-2012US001157

PATIENT
  Age: 59 Year
  Sex: Female
  Weight: 60 kg

DRUGS (1)
  1. TARCEVA [Suspect]
     Indication: PRODUCT USED FOR UNKNOWN INDICATION
     Dosage: UNK
     Route: 048
     Dates: start: 200710

REACTIONS (8)
  - Death [Fatal]
  - Pneumothorax [Unknown]
  - Malignant pleural effusion [Unknown]
  - Lung neoplasm malignant [Unknown]
  - General physical health deterioration [Unknown]
  - Pleural infection [Unknown]
  - Tachycardia [Unknown]
  - Oedema peripheral [Unknown]
